FAERS Safety Report 4505237-9 (Version None)
Quarter: 2004Q4

REPORT INFORMATION
  Report Type: 
  Country: None (occurrence: None)
  Receive Date: 20041116
  Receipt Date: 20041028
  Transmission Date: 20050328
  Serious: Yes (Hospitalization)
  Sender: FDA-Public Use
  Company Number: DSA_25304_2004

PATIENT
  Age: 67 Year
  Sex: Female

DRUGS (3)
  1. TEMESTA [Suspect]
     Dosage: 0.25 MG Q DAY PO
     Route: 048
  2. DI-ANTALVIC [Suspect]
     Dosage: DF PO
     Route: 048
     Dates: start: 20040925, end: 20040925
  3. VOLTAREN [Suspect]
     Dosage: DF PO
     Route: 048
     Dates: start: 20040925, end: 20040930

REACTIONS (1)
  - GASTRIC ULCER HAEMORRHAGE [None]
